FAERS Safety Report 6619283-2 (Version None)
Quarter: 2010Q1

REPORT INFORMATION
  Report Type: 
  Country: None (occurrence: None)
  Receive Date: 20100303
  Receipt Date: 20100212
  Transmission Date: 20100710
  Serious: Yes (Other)
  Sender: FDA-Public Use
  Company Number: 230300J10BRA

PATIENT
  Sex: Male

DRUGS (5)
  1. REBIF [Suspect]
     Indication: RELAPSING-REMITTING MULTIPLE SCLEROSIS
     Dosage: 22 MCG, 3 IN 1 WEEKS
     Dates: start: 20091201
  2. RIVOTRIL (CLONAZEPAM) [Concomitant]
  3. AMYTRIL (AMITRIPTYLINE HYDROCHLORIDE) [Concomitant]
  4. CARBAMAZEPINE [Concomitant]
  5. FLORAL (ALL OTHER THERAPEUTIC PRODUCTS) [Concomitant]

REACTIONS (3)
  - EPILEPSY [None]
  - HYPERTHERMIA [None]
  - INFLUENZA LIKE ILLNESS [None]
